FAERS Safety Report 20061625 (Version 1)
Quarter: 2021Q4

REPORT INFORMATION
  Report Type: Report from Study
  Country: MX (occurrence: MX)
  Receive Date: 20211112
  Receipt Date: 20211112
  Transmission Date: 20220303
  Serious: Yes (Other)
  Sender: FDA-Public Use
  Company Number: MX-NOVARTISPH-NVSC2020MX192931

PATIENT
  Age: 60 Year
  Sex: Female
  Weight: 64 kg

DRUGS (5)
  1. FEMARA [Suspect]
     Active Substance: LETROZOLE
     Indication: Breast cancer
     Dosage: 2.5 MG, QD (STOP ON 4 MONTHS AGO)
     Route: 048
     Dates: start: 201911
  2. LETROZOLE [Suspect]
     Active Substance: LETROZOLE
     Indication: Breast cancer
     Dosage: 2.5 MG, QD (1 TABLET)
     Route: 048
     Dates: start: 201911
  3. MORPHINE [Suspect]
     Active Substance: MORPHINE
     Indication: Bone pain
     Dosage: 15 MG, QD (3 TABLETS) (4 MONTHS)
     Route: 048
  4. MORPHINE [Suspect]
     Active Substance: MORPHINE
     Indication: Bone pain
     Dosage: 20 MG (WHEN SHE HAS LOT OF PAIN) (1 ? MONTHS) 1 TABLET
     Route: 030
  5. INSULIN DEGLUDEC [Concomitant]
     Active Substance: INSULIN DEGLUDEC
     Indication: Diabetes mellitus
     Dosage: 50 IU (BY THE AFTERNOON)
     Route: 058

REACTIONS (12)
  - Diabetes mellitus [Not Recovered/Not Resolved]
  - Bone demineralisation [Unknown]
  - Drug hypersensitivity [Unknown]
  - Drug ineffective [Recovering/Resolving]
  - Eating disorder [Recovering/Resolving]
  - Anaemia [Recovering/Resolving]
  - Bone pain [Not Recovered/Not Resolved]
  - Fatigue [Not Recovered/Not Resolved]
  - Nausea [Not Recovered/Not Resolved]
  - Weight increased [Not Recovered/Not Resolved]
  - Feeling abnormal [Not Recovered/Not Resolved]
  - Hypersensitivity [Not Recovered/Not Resolved]

NARRATIVE: CASE EVENT DATE: 20191201
